FAERS Safety Report 9327954 (Version 1)
Quarter: 2013Q2

REPORT INFORMATION
  Report Type: Spontaneous
  Country: US (occurrence: US)
  Receive Date: 20130604
  Receipt Date: 20130604
  Transmission Date: 20140414
  Serious: Yes (Other)
  Sender: FDA-Public Use
  Company Number: US-SANOFI-AVENTIS-2012SA042597

PATIENT
  Age: 68 Year
  Sex: Female
  Weight: 82.72 kg

DRUGS (5)
  1. LANTUS [Suspect]
     Indication: TYPE 2 DIABETES MELLITUS
     Dosage: DOSE:15 UNIT(S)
     Route: 058
     Dates: start: 20120606
  2. LANTUS [Suspect]
     Indication: TYPE 2 DIABETES MELLITUS
     Dosage: DOSE:20 UNIT(S)
     Route: 058
     Dates: start: 201206, end: 20120610
  3. PAROXETINE [Concomitant]
     Indication: PANIC ATTACK
     Dates: start: 2009
  4. PAROXETINE [Concomitant]
     Indication: ANXIETY
     Dates: start: 2009
  5. LEVOTHYROXINE [Concomitant]
     Indication: THYROID DISORDER
     Dates: start: 1997

REACTIONS (1)
  - Anaphylactic shock [Recovered/Resolved]
